FAERS Safety Report 9967296 (Version 2)
Quarter: 2014Q1

REPORT INFORMATION
  Report Type: Report from Study
  Country: US (occurrence: US)
  Receive Date: 20140305
  Receipt Date: 20140305
  Transmission Date: 20141002
  Serious: No
  Sender: FDA-Public Use
  Company Number: US-ABBVIE-13P-163-1114674-00

PATIENT
  Age: 55 Year
  Sex: Male

DRUGS (8)
  1. HUMIRA [Suspect]
     Indication: ANKYLOSING SPONDYLITIS
     Dates: start: 20130615
  2. IBUPROFEN [Concomitant]
     Indication: BACK PAIN
     Dosage: 1-3 TABS DAILY
  3. HYDROCODONE/APAP [Concomitant]
     Indication: BACK PAIN
     Dosage: 10/650 1-2 TABS DAILY
  4. TRAMADOL [Concomitant]
     Indication: BACK PAIN
     Dosage: 50 MG 1-2 TABS DAILY
  5. SULFASALAZINE [Concomitant]
     Indication: INFLAMMATION
     Dosage: 500 MG 1-2 TABS DAILY
  6. CALCIUM + VITAMIN D [Concomitant]
     Indication: PRODUCT USED FOR UNKNOWN INDICATION
     Dosage: 1-2 TABS DAILY
  7. OMEPRAZOLE [Concomitant]
     Indication: PRODUCT USED FOR UNKNOWN INDICATION
  8. LIDODERM [Concomitant]
     Indication: BACK PAIN

REACTIONS (4)
  - Fatigue [Not Recovered/Not Resolved]
  - Vision blurred [Not Recovered/Not Resolved]
  - Injection site pain [Not Recovered/Not Resolved]
  - Injection site pain [Not Recovered/Not Resolved]
